FAERS Safety Report 5212415-2 (Version None)
Quarter: 2007Q1

REPORT INFORMATION
  Report Type: 
  Country: None (occurrence: None)
  Receive Date: 20070118
  Receipt Date: 20070108
  Transmission Date: 20070707
  Serious: Yes (Hospitalization, Other)
  Sender: FDA-Public Use
  Company Number: US-PFIZER INC-2005097467

PATIENT
  Sex: Female
  Weight: 63.5 kg

DRUGS (1)
  1. BEXTRA [Suspect]
     Indication: ARTHRITIS
     Route: 065

REACTIONS (9)
  - AMNESIA [None]
  - CEREBROVASCULAR ACCIDENT [None]
  - CONVULSION [None]
  - COORDINATION ABNORMAL [None]
  - HYPERTENSION [None]
  - MYOCARDIAL INFARCTION [None]
  - ORGAN FAILURE [None]
  - PULMONARY EMBOLISM [None]
  - THROMBOSIS [None]
